FAERS Safety Report 25897511 (Version 1)
Quarter: 2025Q4

REPORT INFORMATION
  Report Type: Spontaneous
  Country: US (occurrence: US)
  Receive Date: 20251008
  Receipt Date: 20251008
  Transmission Date: 20260118
  Serious: No
  Sender: ROCHE
  Company Number: US-ROCHE-10000404968

PATIENT
  Sex: Female

DRUGS (2)
  1. COTELLIC [Suspect]
     Active Substance: COBIMETINIB FUMARATE
     Indication: Metastases to bone
     Route: 048
     Dates: start: 202509
  2. ZELBORAF [Suspect]
     Active Substance: VEMURAFENIB
     Indication: Metastases to bone
     Dosage: THERAPY WAS ONGOING
     Route: 048
     Dates: start: 202509

REACTIONS (2)
  - Off label use [Unknown]
  - No adverse event [Unknown]
